FAERS Safety Report 8073371-5 (Version None)
Quarter: 2012Q1

REPORT INFORMATION
  Report Type: 
  Country: None (occurrence: None)
  Receive Date: 20120126
  Receipt Date: 20120118
  Transmission Date: 20120608
  Serious: Yes (Death)
  Sender: FDA-Public Use
  Company Number: US-ACTELION-A-US2011-58925

PATIENT

DRUGS (17)
  1. ARTHROTEC [Concomitant]
  2. POTASSIUM CHLORIDE [Concomitant]
  3. SPIRIVA [Concomitant]
  4. LORTAB [Concomitant]
  5. TYVASO [Suspect]
  6. CALCIUM [Concomitant]
  7. CRESTOR [Concomitant]
  8. B COMPLEX B12 [Concomitant]
  9. THEOPHYLLINE [Concomitant]
  10. ASPIRIN [Concomitant]
  11. TRACLEER [Suspect]
     Indication: PULMONARY ARTERIAL HYPERTENSION
     Dosage: UNK
     Route: 048
     Dates: start: 20110719
  12. ALLEGRA [Concomitant]
  13. FLONASE [Concomitant]
  14. FISH OIL [Concomitant]
  15. COZAAR [Concomitant]
  16. FOLIC ACID [Concomitant]
  17. PROVENTIL [Concomitant]

REACTIONS (3)
  - CARDIAC ARREST [None]
  - DYSPNOEA [None]
  - PULMONARY ARTERIAL HYPERTENSION [None]
